FAERS Safety Report 9693938 (Version 2)
Quarter: 2013Q4

REPORT INFORMATION
  Report Type: Spontaneous
  Country: BE (occurrence: BE)
  Receive Date: 20131118
  Receipt Date: 20131119
  Transmission Date: 20140711
  Serious: Yes (Other)
  Sender: FDA-Public Use
  Company Number: BE-ROCHE-1300229

PATIENT
  Age: 54 Year
  Sex: Female
  Weight: 84 kg

DRUGS (9)
  1. HERCEPTIN [Suspect]
     Indication: BREAST CANCER
     Route: 065
     Dates: start: 200908, end: 201005
  2. XELODA [Suspect]
     Indication: BREAST CANCER METASTATIC
     Route: 065
     Dates: start: 201308, end: 201310
  3. AROMASIN [Suspect]
     Indication: BREAST CANCER
     Route: 065
     Dates: start: 201209, end: 201302
  4. TAXOL [Suspect]
     Indication: BREAST CANCER METASTATIC
     Route: 065
     Dates: start: 201302, end: 201307
  5. TYVERB [Suspect]
     Indication: BREAST CANCER METASTATIC
     Route: 065
     Dates: start: 201308, end: 201310
  6. FLUOROURACIL [Concomitant]
     Indication: BREAST CANCER
     Route: 065
     Dates: start: 200908, end: 201001
  7. NOLVADEX [Concomitant]
     Indication: BREAST CANCER
     Route: 065
     Dates: start: 200908, end: 201209
  8. EPIRUBICIN [Concomitant]
     Indication: BREAST CANCER
     Route: 065
     Dates: start: 200908, end: 201001
  9. CYCLOPHOSPHAMIDE [Concomitant]
     Indication: BREAST CANCER
     Route: 065
     Dates: start: 200908, end: 201001

REACTIONS (4)
  - Ejection fraction decreased [Unknown]
  - Malignant pleural effusion [Unknown]
  - Ascites [Unknown]
  - Metastases to liver [Unknown]
